FAERS Safety Report 13647532 (Version 2)
Quarter: 2017Q3

REPORT INFORMATION
  Report Type: Spontaneous
  Country: GB (occurrence: GB)
  Receive Date: 20170613
  Receipt Date: 20170810
  Transmission Date: 20171127
  Serious: Yes (Other)
  Sender: FDA-Public Use
  Company Number: GB-SA-2017SA100945

PATIENT
  Age: 45 Year
  Sex: Male

DRUGS (2)
  1. ALEMTUZUMAB [Suspect]
     Active Substance: ALEMTUZUMAB
     Indication: MULTIPLE SCLEROSIS
     Route: 041
     Dates: start: 2014
  2. METHYLPREDNISOLONE. [Concomitant]
     Active Substance: METHYLPREDNISOLONE
     Indication: MULTIPLE SCLEROSIS
     Route: 065

REACTIONS (10)
  - Haematuria [Unknown]
  - Oedema peripheral [Unknown]
  - Chills [Unknown]
  - Pyrexia [Unknown]
  - Blood creatinine increased [Unknown]
  - Goodpasture^s syndrome [Unknown]
  - Urine output decreased [Unknown]
  - Weight increased [Unknown]
  - Anuria [Unknown]
  - Anti-glomerular basement membrane antibody positive [Unknown]
